FAERS Safety Report 14920958 (Version 1)
Quarter: 2018Q2

REPORT INFORMATION
  Report Type: Report from Study
  Country: US (occurrence: US)
  Receive Date: 20180521
  Receipt Date: 20180521
  Transmission Date: 20180711
  Serious: Yes (Other)
  Sender: FDA-Public Use
  Company Number: US-ACTELION-A-US2017-164741

PATIENT
  Age: 64 Year
  Sex: Female
  Weight: 118.82 kg

DRUGS (1)
  1. UPTRAVI [Suspect]
     Active Substance: SELEXIPAG
     Indication: PULMONARY ARTERIAL HYPERTENSION
     Dosage: 1600 MCG, BID
     Route: 048

REACTIONS (3)
  - Emphysema [Unknown]
  - Renal disorder [Unknown]
  - Pulmonary function test decreased [Unknown]
